FAERS Safety Report 12417615 (Version 17)
Quarter: 2021Q1

REPORT INFORMATION
  Report Type: Report from Study
  Country: BR (occurrence: BR)
  Receive Date: 20160530
  Receipt Date: 20210107
  Transmission Date: 20210419
  Serious: Yes (Life-Threatening, Hospitalization, Other)
  Sender: FDA-Public Use
  Company Number: PHHY2016BR072363

PATIENT
  Age: 65 Year
  Sex: Male
  Weight: 70 kg

DRUGS (11)
  1. SANDOSTATIN LAR DEPOT [Suspect]
     Active Substance: OCTREOTIDE ACETATE
     Dosage: 40 MG, UNK (AMPOULE)
     Route: 030
  2. SANDOSTATIN LAR DEPOT [Suspect]
     Active Substance: OCTREOTIDE ACETATE
     Dosage: 30 MG, QMO (1 AMPOULE A MONTH)
     Route: 030
     Dates: start: 20100301, end: 201806
  3. CABERGOLINA [Suspect]
     Active Substance: CABERGOLINE
     Indication: ACROMEGALY
     Dosage: 1 DF, QD (1 TABLET OF 5 MG)
     Route: 048
     Dates: start: 2010
  4. SANDOSTATIN LAR DEPOT [Suspect]
     Active Substance: OCTREOTIDE ACETATE
     Dosage: 20 MG, QMO (1 INJCTION EVERY 28 DAYS)
     Route: 030
     Dates: start: 201807
  5. DEPOSTERON [Concomitant]
     Active Substance: TESTOSTERONE
     Indication: ACROMEGALY
     Dosage: UNK (EVERY 21 DAYS)(1 AMPOULE, IN THE BUTTOCK)
     Route: 065
     Dates: start: 2010
  6. PREDNISONE. [Concomitant]
     Active Substance: PREDNISONE
     Indication: ANTIALLERGIC THERAPY
     Dosage: 1 DF, QD (1 TABLET OF 5 MG)
     Route: 048
     Dates: start: 2010
  7. SANDOSTATIN LAR DEPOT [Suspect]
     Active Substance: OCTREOTIDE ACETATE
     Dosage: 40 MG, QMO
     Route: 030
  8. SANDOSTATIN LAR DEPOT [Suspect]
     Active Substance: OCTREOTIDE ACETATE
     Indication: ACROMEGALY
     Dosage: 20 MG, QMO (2 AMPOULES OF 20 MG)
     Route: 030
     Dates: start: 20100114
  9. SANDOSTATIN LAR DEPOT [Suspect]
     Active Substance: OCTREOTIDE ACETATE
     Dosage: 40 MG, UNK (AMPOULE)
     Route: 030
     Dates: start: 20181227
  10. SANDOSTATIN LAR DEPOT [Suspect]
     Active Substance: OCTREOTIDE ACETATE
     Dosage: 40 MG, QMO
     Route: 065
     Dates: start: 201003
  11. ALENDRONATE SODIUM. [Suspect]
     Active Substance: ALENDRONATE SODIUM
     Indication: OSTEOPOROSIS
     Dosage: UNK (1 TABLET, PER WEEK IN THE MORNING)(STARTED 4 MONTHS AGO TO 4 MONTHS AGO)
     Route: 048

REACTIONS (36)
  - Amnesia [Unknown]
  - Muscular weakness [Unknown]
  - Influenza [Recovered/Resolved]
  - Osteoarthritis [Not Recovered/Not Resolved]
  - Bone pain [Not Recovered/Not Resolved]
  - Pain [Not Recovered/Not Resolved]
  - Osteoporosis [Not Recovered/Not Resolved]
  - Nausea [Recovered/Resolved]
  - Thyroid disorder [Unknown]
  - Insomnia [Unknown]
  - Asthenia [Not Recovered/Not Resolved]
  - Loss of consciousness [Unknown]
  - Spinal pain [Not Recovered/Not Resolved]
  - Back pain [Not Recovered/Not Resolved]
  - Thyroid mass [Recovered/Resolved]
  - Suture related complication [Unknown]
  - Viral infection [Recovered/Resolved]
  - Decreased appetite [Not Recovered/Not Resolved]
  - Fatigue [Not Recovered/Not Resolved]
  - Feeling abnormal [Unknown]
  - Spinal disorder [Not Recovered/Not Resolved]
  - Gait disturbance [Not Recovered/Not Resolved]
  - Application site pain [Unknown]
  - Fall [Recovered/Resolved]
  - Brain neoplasm [Unknown]
  - Gait inability [Not Recovered/Not Resolved]
  - Dizziness [Recovered/Resolved]
  - Depressed mood [Unknown]
  - Heart rate irregular [Recovered/Resolved]
  - Abdominal pain [Recovered/Resolved]
  - Weight decreased [Not Recovered/Not Resolved]
  - Blood pressure increased [Unknown]
  - Malaise [Unknown]
  - Spinal deformity [Not Recovered/Not Resolved]
  - Hormone level abnormal [Unknown]
  - Dyspnoea [Not Recovered/Not Resolved]

NARRATIVE: CASE EVENT DATE: 201806
